FAERS Safety Report 5865495-5 (Version None)
Quarter: 2008Q3

REPORT INFORMATION
  Report Type: 
  Country: None (occurrence: None)
  Receive Date: 20080829
  Receipt Date: 20080825
  Transmission Date: 20090109
  Serious: Yes (Other)
  Sender: FDA-Public Use
  Company Number: IT-BRISTOL-MYERS SQUIBB COMPANY-14315881

PATIENT

DRUGS (2)
  1. CYCLOPHOSPHAMIDE [Suspect]
     Indication: MYASTHENIA GRAVIS
  2. PREDNISONE TAB [Suspect]
     Indication: MYASTHENIA GRAVIS

REACTIONS (1)
  - FIBROUS HISTIOCYTOMA [None]
